FAERS Safety Report 8942628 (Version 3)
Quarter: 2013Q3

REPORT INFORMATION
  Report Type: Spontaneous
  Country: US (occurrence: US)
  Receive Date: 20121204
  Receipt Date: 20130829
  Transmission Date: 20140515
  Serious: Yes (Other)
  Sender: FDA-Public Use
  Company Number: US-BAYER-2012-126390

PATIENT
  Age: 48 Year
  Sex: Female

DRUGS (3)
  1. YASMIN [Suspect]
  2. YAZ [Suspect]
  3. MULTIVITAMIN [Concomitant]

REACTIONS (5)
  - Thrombophlebitis superficial [None]
  - Thrombosis [None]
  - Pain [None]
  - Injury [None]
  - Pain [None]
